FAERS Safety Report 5923999-0 (Version None)
Quarter: 2008Q4

REPORT INFORMATION
  Report Type: 
  Country: None (occurrence: None)
  Receive Date: 20081020
  Receipt Date: 20081010
  Transmission Date: 20090506
  Serious: Yes (Other)
  Sender: FDA-Public Use
  Company Number: PHHY2008IE15336

PATIENT
  Age: 12 Year
  Sex: Male

DRUGS (2)
  1. RITALIN LA [Suspect]
     Indication: ATTENTION DEFICIT/HYPERACTIVITY DISORDER
     Dosage: 20 MG
     Route: 048
     Dates: start: 20050501
  2. RITALIN LA [Suspect]
     Dosage: 30 MG
     Route: 048

REACTIONS (3)
  - BLOOD BILIRUBIN INCREASED [None]
  - LEUKOPENIA [None]
  - NEUTROPENIA [None]
